FAERS Safety Report 17155727 (Version 1)
Quarter: 2019Q4

REPORT INFORMATION
  Report Type: Spontaneous
  Country: US (occurrence: US)
  Receive Date: 20191215
  Receipt Date: 20191215
  Transmission Date: 20200122
  Serious: No
  Sender: FDA-Public Use
  Company Number: US-ENDO PHARMACEUTICALS INC-2019-106909

PATIENT
  Age: 49 Year
  Sex: Male
  Weight: 72.56 kg

DRUGS (2)
  1. XIAFLEX [Suspect]
     Active Substance: COLLAGENASE CLOSTRIDIUM HISTOLYTICUM
     Indication: PEYRONIE^S DISEASE
     Dosage: UNK UNKNOWN, CYCLE 1, INJECTION 1
     Route: 026
     Dates: start: 20190716
  2. XIAFLEX [Suspect]
     Active Substance: COLLAGENASE CLOSTRIDIUM HISTOLYTICUM
     Dosage: UNK UNKNOWN, CYCLE 1, INJECTION 2
     Route: 026
     Dates: start: 20190719

REACTIONS (6)
  - Penile contusion [Not Recovered/Not Resolved]
  - Penile pain [Recovered/Resolved]
  - Penile swelling [Not Recovered/Not Resolved]
  - Scrotal swelling [Not Recovered/Not Resolved]
  - Genital contusion [Not Recovered/Not Resolved]
  - Scrotal pain [Recovered/Resolved]

NARRATIVE: CASE EVENT DATE: 20190716
